FAERS Safety Report 6842554-1 (Version None)
Quarter: 2010Q3

REPORT INFORMATION
  Report Type: 
  Country: None (occurrence: None)
  Receive Date: 20100714
  Receipt Date: 20070801
  Transmission Date: 20110219
  Serious: No
  Sender: FDA-Public Use
  Company Number: US-PFIZER INC-2007065190

PATIENT
  Sex: Female
  Weight: 101.6 kg

DRUGS (7)
  1. CHANTIX [Suspect]
     Indication: SMOKING CESSATION THERAPY
     Route: 048
     Dates: start: 20070701, end: 20070725
  2. PREVACID [Concomitant]
  3. TRICOR [Concomitant]
  4. LIPITOR [Concomitant]
  5. HYDROCHLOROTHIAZIDE [Concomitant]
  6. ALLEGRA D 24 HOUR [Concomitant]
     Dosage: 12 HOUR
  7. ALBUTEROL [Concomitant]
     Route: 055

REACTIONS (1)
  - VOMITING [None]
